FAERS Safety Report 17035045 (Version 1)
Quarter: 2019Q4

REPORT INFORMATION
  Report Type: Spontaneous
  Country: US (occurrence: US)
  Receive Date: 20191115
  Receipt Date: 20191115
  Transmission Date: 20200122
  Serious: No
  Sender: FDA-Public Use
  Company Number: US-ELI_LILLY_AND_COMPANY-US201910010420

PATIENT
  Age: 58 Year
  Sex: Male

DRUGS (1)
  1. BASAGLAR [Suspect]
     Active Substance: INSULIN GLARGINE
     Indication: TYPE 1 DIABETES MELLITUS
     Dosage: 30 U, BID
     Route: 065

REACTIONS (6)
  - Speech disorder [Recovered/Resolved]
  - Inappropriate schedule of product administration [Unknown]
  - Blood glucose decreased [Recovering/Resolving]
  - Thinking abnormal [Recovered/Resolved]
  - Blood glucose increased [Recovering/Resolving]
  - Mental impairment [Not Recovered/Not Resolved]
